FAERS Safety Report 5269255-8 (Version None)
Quarter: 2007Q1

REPORT INFORMATION
  Report Type: 
  Country: None (occurrence: None)
  Receive Date: 20070319
  Receipt Date: 20070307
  Transmission Date: 20070707
  Serious: Yes (Hospitalization)
  Sender: FDA-Public Use
  Company Number: FR-PFIZER INC-2006071362

PATIENT
  Sex: Male

DRUGS (10)
  1. SU-011,248 [Suspect]
     Indication: METASTATIC RENAL CELL CARCINOMA
     Route: 048
     Dates: start: 20060321, end: 20060530
  2. HYTACAND [Concomitant]
     Dosage: TEXT:UNKNOWN
     Route: 048
  3. ZANIDIP [Concomitant]
     Dosage: TEXT:UNKNOWN-FREQ:UNKNOWN
     Route: 048
  4. NEBILOX [Concomitant]
     Dosage: TEXT:UNKNOWN-FREQ:UNKNOWN
     Route: 048
  5. LODALES [Concomitant]
     Dosage: TEXT:UNKNOWN-FREQ:UNKNOWN
     Route: 048
  6. ALLOPURINOL [Concomitant]
     Dosage: TEXT:UNKNOWN-FREQ:UNKNOWN
     Route: 048
  7. SINTROM [Concomitant]
     Dosage: TEXT:UNKNOWN-FREQ:UNKNOWN
     Route: 048
     Dates: start: 20060101, end: 20060531
  8. PREVISCAN [Concomitant]
     Route: 048
     Dates: start: 20060101, end: 20060621
  9. MAGIC MOUTHWASH [Concomitant]
     Dates: start: 20060418
  10. ACETAMINOPHEN [Concomitant]
     Route: 048
     Dates: start: 20060609

REACTIONS (1)
  - CEREBRAL HAEMATOMA [None]
